FAERS Safety Report 8317826-4 (Version None)
Quarter: 2012Q2

REPORT INFORMATION
  Report Type: 
  Country: None (occurrence: None)
  Receive Date: 20120427
  Receipt Date: 20120423
  Transmission Date: 20120825
  Serious: Yes (Hospitalization, Other)
  Sender: FDA-Public Use
  Company Number: US-ASTRAZENECA-2010SE09683

PATIENT
  Age: 60 Year
  Sex: Female

DRUGS (1)
  1. CRESTOR [Suspect]
     Indication: BLOOD CHOLESTEROL ABNORMAL
     Route: 048

REACTIONS (9)
  - NASOPHARYNGITIS [None]
  - AMNESIA [None]
  - CEREBROVASCULAR ACCIDENT [None]
  - LUNG NEOPLASM MALIGNANT [None]
  - CONVULSION [None]
  - URINARY TRACT INFECTION [None]
  - MIGRAINE [None]
  - INTENTIONAL DRUG MISUSE [None]
  - BRAIN NEOPLASM MALIGNANT [None]
